FAERS Safety Report 21513546 (Version 5)
Quarter: 2023Q2

REPORT INFORMATION
  Report Type: Spontaneous
  Country: BR (occurrence: BR)
  Receive Date: 20221027
  Receipt Date: 20230602
  Transmission Date: 20230721
  Serious: Yes (Hospitalization, Other)
  Sender: FDA-Public Use
  Company Number: BR-GLAXOSMITHKLINE-BR2021AMR080069

PATIENT

DRUGS (4)
  1. NUCALA [Suspect]
     Active Substance: MEPOLIZUMAB
     Indication: Asthma
     Dosage: 100 MG/ML, Q4W
     Dates: start: 20210127, end: 20210804
  2. NUCALA [Suspect]
     Active Substance: MEPOLIZUMAB
     Indication: Asthma
     Dosage: 100 MG
     Dates: start: 20210127
  3. ALBUTEROL [Suspect]
     Active Substance: ALBUTEROL
     Indication: Product used for unknown indication
     Dosage: 6 PUFF(S)
  4. COVID-19 VACCINE [Concomitant]
     Indication: COVID-19 prophylaxis
     Dosage: UNK

REACTIONS (22)
  - Bacterial infection [Unknown]
  - Influenza [Unknown]
  - Feeling abnormal [Unknown]
  - Bronchial obstruction [Unknown]
  - Pneumonia [Recovered/Resolved]
  - Cystic fibrosis [Unknown]
  - Dyspnoea [Recovered/Resolved]
  - Hypersensitivity [Unknown]
  - Cough [Recovered/Resolved]
  - Illness [Unknown]
  - Aphonia [Recovered/Resolved]
  - Fatigue [Recovered/Resolved]
  - Sleep disorder due to a general medical condition [Recovered/Resolved]
  - Productive cough [Recovered/Resolved]
  - Secretion discharge [Recovered/Resolved]
  - Oropharyngeal pain [Recovered/Resolved]
  - Therapy interrupted [Unknown]
  - Exposure during pregnancy [Recovered/Resolved]
  - Circumstance or information capable of leading to medication error [Unknown]
  - Product use in unapproved indication [Unknown]
  - Inappropriate schedule of product administration [Unknown]
  - Product dose omission issue [Unknown]

NARRATIVE: CASE EVENT DATE: 20211201
